FAERS Safety Report 5708149-8 (Version None)
Quarter: 2008Q2

REPORT INFORMATION
  Report Type: 
  Country: None (occurrence: None)
  Receive Date: 20080417
  Receipt Date: 20080411
  Transmission Date: 20081010
  Serious: Yes (Death)
  Sender: FDA-Public Use
  Company Number: B0510148A

PATIENT
  Age: 65 Year
  Sex: Male

DRUGS (5)
  1. AUGMENTIN '125' [Suspect]
     Indication: DRUG USE FOR UNKNOWN INDICATION
     Dosage: 4400MG PER DAY
     Route: 042
     Dates: start: 20080214, end: 20080214
  2. NIMBEX [Suspect]
     Indication: DRUG USE FOR UNKNOWN INDICATION
     Dosage: 20MG PER DAY
     Route: 042
     Dates: start: 20080214, end: 20080214
  3. POVIDONE [Suspect]
     Indication: DRUG USE FOR UNKNOWN INDICATION
     Dates: start: 20080214, end: 20080214
  4. ANAESTHETIC [Concomitant]
     Indication: HERNIA REPAIR
  5. CHEMOTHERAPY [Concomitant]
     Dates: start: 20070101

REACTIONS (4)
  - ANAPHYLACTIC SHOCK [None]
  - ARTERIOSCLEROSIS CORONARY ARTERY [None]
  - MYOCARDIAL FIBROSIS [None]
  - RENAL CELL CARCINOMA [None]
